FAERS Safety Report 5756365-1 (Version None)
Quarter: 2008Q2

REPORT INFORMATION
  Report Type: 
  Country: None (occurrence: None)
  Receive Date: 20080528
  Receipt Date: 20080528
  Transmission Date: 20081010
  Serious: No
  Sender: FDA-Public Use
  Company Number: None

PATIENT
  Age: 55 Day
  Sex: Male
  Weight: 58.9676 kg

DRUGS (4)
  1. JANUVIA [Suspect]
     Indication: DIABETES MELLITUS
     Dosage: ONE TABLET  ONE  ACH DAY  PO
     Route: 048
     Dates: start: 20070518, end: 20080526
  2. LEVOTHYROXINE SODIUM [Concomitant]
  3. SIMVASTATIN [Concomitant]
  4. NIACIN [Concomitant]

REACTIONS (5)
  - CONSTIPATION [None]
  - DYSGEUSIA [None]
  - FEELING ABNORMAL [None]
  - GLOSSODYNIA [None]
  - UPPER RESPIRATORY TRACT INFECTION [None]
